FAERS Safety Report 6156666-1 (Version None)
Quarter: 2009Q2

REPORT INFORMATION
  Report Type: 
  Country: None (occurrence: None)
  Receive Date: 20090416
  Receipt Date: 20090409
  Transmission Date: 20091009
  Serious: Yes (Other)
  Sender: FDA-Public Use
  Company Number: DE-JNJFOC-20090402680

PATIENT
  Age: 10 Year
  Sex: Male

DRUGS (1)
  1. RISPERDAL [Suspect]
     Indication: TOURETTE'S DISORDER
     Dosage: UPTO 3 MG
     Route: 065

REACTIONS (3)
  - FATIGUE [None]
  - LEUKOPENIA [None]
  - OFF LABEL USE [None]
